FAERS Safety Report 9222713 (Version 1)
Quarter: 2013Q1

REPORT INFORMATION
  Report Type: Spontaneous
  Country: US (occurrence: US)
  Receive Date: 20120914
  Receipt Date: 20120914
  Transmission Date: 20140127
  Serious: Yes (Other)
  Sender: FDA-Public Use
  Company Number: JPI-P-022139

PATIENT
  Age: 62 Year
  Sex: Female

DRUGS (3)
  1. XYREM (500 MG/ML SOLUTION)(SODIUM OXYBATE) [Suspect]
     Indication: APNOEA
     Dosage: 1 DOSES OF 2.25 GM TAKEN NIGHTLY/AT BEDTIME.
     Route: 048
     Dates: start: 20100311
  2. UNSPECIFIED MEDICATION [Suspect]
     Indication: DIABETES MELLITUS
     Dates: end: 201205
  3. UNSPECIFIED MEDICATION [Suspect]
     Indication: HYPERTENSION
     Dates: end: 201205

REACTIONS (3)
  - Blood pressure increased [None]
  - Condition aggravated [None]
  - Diabetes mellitus inadequate control [None]
